FAERS Safety Report 9983176 (Version 3)
Quarter: 2014Q2

REPORT INFORMATION
  Report Type: Spontaneous
  Country: US (occurrence: US)
  Receive Date: 20140307
  Receipt Date: 20140604
  Transmission Date: 20141212
  Serious: Yes (Hospitalization, Other)
  Sender: FDA-Public Use
  Company Number: US-PFIZER INC-2014065881

PATIENT
  Age: 68 Year
  Sex: Male
  Weight: 133.4 kg

DRUGS (4)
  1. XELJANZ [Suspect]
     Indication: RHEUMATOID ARTHRITIS
     Dosage: 5 MG, 2X/DAY
     Route: 048
     Dates: end: 20140304
  2. LISINOPRIL [Suspect]
     Dosage: UNK
  3. HYDROCHLOROTHIAZIDE [Suspect]
     Dosage: UNK
  4. JANUMET [Suspect]

REACTIONS (3)
  - Atrial flutter [Unknown]
  - Atrial fibrillation [Unknown]
  - Renal failure [Recovering/Resolving]
